FAERS Safety Report 6372448-X (Version None)
Quarter: 2009Q3

REPORT INFORMATION
  Report Type: 
  Country: None (occurrence: None)
  Receive Date: 20090924
  Receipt Date: 20080902
  Transmission Date: 20100115
  Serious: No
  Sender: FDA-Public Use
  Company Number: US-ASTRAZENECA-2008UW18037

PATIENT
  Age: 32 Year
  Sex: Female
  Weight: 108.9 kg

DRUGS (8)
  1. SEROQUEL [Suspect]
     Indication: ANXIETY
     Dosage: 50 MG QAM + 50 MG AT NOON +100 MG AT 1700 + 400 MA HS
     Route: 048
     Dates: start: 20020101
  2. SEROQUEL [Suspect]
     Indication: SEDATION
     Dosage: 50 MG QAM + 50 MG AT NOON +100 MG AT 1700 + 400 MA HS
     Route: 048
     Dates: start: 20020101
  3. DEPAKOTE [Concomitant]
  4. ABILIFY [Concomitant]
  5. SYNTHROID [Concomitant]
  6. RANITIDINE [Concomitant]
  7. HYDROCHLOROTHIAZIDE [Concomitant]
  8. DEPO-PROVERA [Concomitant]
     Dosage: Q 3 MONTHS

REACTIONS (4)
  - DYSPEPSIA [None]
  - DYSPNOEA [None]
  - THROAT TIGHTNESS [None]
  - URINE AMPHETAMINE POSITIVE [None]
